FAERS Safety Report 23565888 (Version 3)
Quarter: 2024Q1

REPORT INFORMATION
  Report Type: Spontaneous
  Country: US (occurrence: US)
  Receive Date: 20240226
  Receipt Date: 20240327
  Transmission Date: 20240410
  Serious: Yes (Other)
  Sender: FDA-Public Use
  Company Number: US-INCYTE CORPORATION-2024IN001922

PATIENT

DRUGS (1)
  1. JAKAFI [Suspect]
     Active Substance: RUXOLITINIB
     Indication: Myelofibrosis
     Dosage: 20 MILLIGRAM, BID
     Route: 048
     Dates: start: 202402

REACTIONS (9)
  - Neuropathy peripheral [Unknown]
  - Fatigue [Unknown]
  - Frequent bowel movements [Unknown]
  - Abdominal distension [Unknown]
  - Oedema [Unknown]
  - Swelling [Unknown]
  - Blood pressure increased [Unknown]
  - Flatulence [Unknown]
  - Weight increased [Unknown]

NARRATIVE: CASE EVENT DATE: 20240301
